FAERS Safety Report 23243126 (Version 1)
Quarter: 2023Q4

REPORT INFORMATION
  Report Type: Report from Study
  Country: US (occurrence: US)
  Receive Date: 20231130
  Receipt Date: 20231130
  Transmission Date: 20240109
  Serious: No
  Sender: FDA-Public Use
  Company Number: US-ALXN-A202310397

PATIENT
  Age: 60 Year
  Sex: Female

DRUGS (1)
  1. STRENSIQ [Suspect]
     Active Substance: ASFOTASE ALFA
     Indication: Hypophosphatasia
     Dosage: 164 MILLIGRAM PER MILLILITRE, TIW
     Route: 058
     Dates: start: 20230809

REACTIONS (12)
  - Heart rate increased [Unknown]
  - Somnolence [Unknown]
  - Headache [Unknown]
  - Injection site rash [Unknown]
  - Application site erythema [Unknown]
  - Application site irritation [Unknown]
  - Fatigue [Unknown]
  - Gastrointestinal disorder [Unknown]
  - Off label use [Unknown]
  - Injection site pain [Recovering/Resolving]
  - Injection site erythema [Unknown]
  - Injection site reaction [Unknown]

NARRATIVE: CASE EVENT DATE: 20230809
